FAERS Safety Report 7906590-6 (Version None)
Quarter: 2011Q4

REPORT INFORMATION
  Report Type: 
  Country: None (occurrence: None)
  Receive Date: 20111110
  Receipt Date: 20111101
  Transmission Date: 20120403
  Serious: Yes (Hospitalization)
  Sender: FDA-Public Use
  Company Number: DE-SANOFI-AVENTIS-F01200801253

PATIENT
  Age: 79 Year
  Sex: Male
  Weight: 80 kg

DRUGS (9)
  1. LEUPROLIDE ACETATE [Suspect]
     Indication: PROSTATE CANCER
     Route: 058
     Dates: start: 20061207, end: 20071107
  2. AMLODIPINE [Concomitant]
     Indication: HYPERTENSION
     Route: 048
     Dates: start: 20080701
  3. CARDULAR PP [Concomitant]
     Route: 065
     Dates: start: 20010501
  4. OPIPRAMOL [Concomitant]
     Route: 065
     Dates: start: 20030801
  5. CANDESARTAN CILEXETIL [Concomitant]
     Route: 065
     Dates: start: 20030801
  6. MOBLOC [Concomitant]
     Route: 065
     Dates: start: 20030823
  7. CASODEX [Suspect]
     Indication: PROSTATE CANCER
     Route: 048
     Dates: start: 20061207, end: 20070106
  8. BISOPROLOL [Concomitant]
     Indication: HYPERTENSION
     Route: 048
     Dates: start: 20080701
  9. BENAZEPRIL HYDROCHLORIDE/HYDROCHLOROTHIAZIDE [Concomitant]
     Dosage: 20/75 MG
     Route: 065
     Dates: start: 20041001

REACTIONS (1)
  - METASTASES TO LIVER [None]
